FAERS Safety Report 5977352-4 (Version None)
Quarter: 2008Q4

REPORT INFORMATION
  Report Type: 
  Country: None (occurrence: None)
  Receive Date: 20081203
  Receipt Date: 20081124
  Transmission Date: 20090506
  Serious: Yes (Hospitalization)
  Sender: FDA-Public Use
  Company Number: PHHY2008DE19055

PATIENT
  Sex: Male
  Weight: 76.5 kg

DRUGS (19)
  1. SANDIMMUNE [Suspect]
     Indication: RENAL TRANSPLANT
     Dosage: 50 MG, BID
     Route: 048
  2. METOHEXAL [Concomitant]
     Dosage: HALF PER DAY
  3. PREDNISONE [Concomitant]
     Dosage: 5 MG, QD
  4. DREISAVIT [Concomitant]
     Dosage: 1 DF, BID
  5. FUROSEMID [Concomitant]
     Dosage: 1 DF, BID
  6. IRBESARTAN [Concomitant]
     Dosage: 1 DF, QD
  7. RASILEZ [Concomitant]
     Dosage: 150 MG, QD
  8. CATAPRESAN [Concomitant]
     Dosage: 1 PER REAL NEED
  9. FELODIPINE [Concomitant]
     Dosage: 2.5 MG, TID
  10. LEVOTHYROXINE SODIUM [Concomitant]
     Dosage: 50 MG, QD
  11. RENAGEL [Concomitant]
     Dosage: 3 DF, TID
  12. BONDIOL [Concomitant]
     Dosage: 1 DF, QD
  13. PRAVASTATIN [Concomitant]
     Dosage: 20 MG WITH PAUSES
  14. GABAPENTIN [Concomitant]
     Dosage: 2 DF, BID
  15. RENACET [Concomitant]
  16. PHOSPHONORM [Concomitant]
     Dosage: 3 DF, TID
  17. OMEPRAZOLE [Concomitant]
     Dosage: 2 DF, BID
  18. ACTONEL [Concomitant]
     Dosage: 35 MG ONCE PER WEEK
  19. BIKALM [Concomitant]
     Dosage: PER REAL NEED 1 TABLET

REACTIONS (6)
  - BACK PAIN [None]
  - BONE PAIN [None]
  - GAIT DISTURBANCE [None]
  - MYALGIA [None]
  - STENT PLACEMENT [None]
  - VASCULAR OCCLUSION [None]
